FAERS Safety Report 15288040 (Version 1)
Quarter: 2018Q3

REPORT INFORMATION
  Report Type: Spontaneous
  Country: GB (occurrence: GB)
  Receive Date: 20180817
  Receipt Date: 20180817
  Transmission Date: 20181010
  Serious: Yes (Other)
  Sender: FDA-Public Use
  Company Number: GB-TEVA-2018-GB-941878

PATIENT
  Age: 74 Year
  Sex: Male
  Weight: 70.5 kg

DRUGS (5)
  1. INSULIN GLARGINE [Concomitant]
     Active Substance: INSULIN GLARGINE
  2. INSULIN ASPART [Concomitant]
     Active Substance: INSULIN ASPART
  3. CLOPIDOGREL [Concomitant]
     Active Substance: CLOPIDOGREL BISULFATE
  4. PIOGLITAZONE. [Suspect]
     Active Substance: PIOGLITAZONE
     Indication: TYPE 2 DIABETES MELLITUS
     Dosage: 15 MILLIGRAM DAILY;
     Route: 048
     Dates: start: 20081120, end: 20180710
  5. SIMVASTATIN. [Concomitant]
     Active Substance: SIMVASTATIN

REACTIONS (1)
  - Gallbladder neoplasm [Unknown]

NARRATIVE: CASE EVENT DATE: 20180522
